FAERS Safety Report 20016093 (Version 1)
Quarter: 2021Q4

REPORT INFORMATION
  Report Type: Spontaneous
  Country: US (occurrence: None)
  Receive Date: 20211102
  Receipt Date: 20211102
  Transmission Date: 20220304
  Serious: No
  Sender: FDA-Public Use
  Company Number: None

PATIENT
  Sex: Male
  Weight: 71.5 kg

DRUGS (1)
  1. TOPOTECAN [Suspect]
     Active Substance: TOPOTECAN HYDROCHLORIDE
     Dates: end: 20211025

REACTIONS (4)
  - Blood pressure increased [None]
  - Pain [None]
  - Therapy interrupted [None]
  - Dyspnoea [None]

NARRATIVE: CASE EVENT DATE: 20211026
